FAERS Safety Report 4431235-X (Version None)
Quarter: 2004Q3

REPORT INFORMATION
  Report Type: 
  Country: None (occurrence: None)
  Receive Date: 20040818
  Receipt Date: 20040802
  Transmission Date: 20050211
  Serious: Yes (Hospitalization)
  Sender: FDA-Public Use
  Company Number: 230027M04SWE

PATIENT
  Age: 45 Year
  Sex: Female
  Weight: 56 kg

DRUGS (9)
  1. REBIF [Suspect]
     Indication: MULTIPLE SCLEROSIS
     Dosage: 22 MCG, 3 IN 1 WEEKS, SUBCUTANEOUS
     Route: 058
     Dates: start: 19990101, end: 20040702
  2. KETOPROFEN [Concomitant]
  3. FOLACIN [Concomitant]
  4. CYANOCOBALAMIN [Concomitant]
  5. LORATADINE [Concomitant]
  6. ZOPICLONE [Concomitant]
  7. PROPIOMAZINE MALEATE [Concomitant]
  8. B-KOMPLEX ^LECIVA^ [Concomitant]
  9. LEKOVIT CA [Concomitant]

REACTIONS (1)
  - CRYPTOGENIC ORGANIZING PNEUMONIA [None]
